FAERS Safety Report 16327497 (Version 2)
Quarter: 2020Q2

REPORT INFORMATION
  Report Type: Spontaneous
  Country: US (occurrence: US)
  Receive Date: 20190517
  Receipt Date: 20200408
  Transmission Date: 20200713
  Serious: Yes (Other)
  Sender: FDA-Public Use
  Company Number: US-GILEAD-2019-0408511

PATIENT
  Sex: Male

DRUGS (40)
  1. DIPHENHYDRAMINE. [Concomitant]
     Active Substance: DIPHENHYDRAMINE
  2. TRIUMEQ [Concomitant]
     Active Substance: ABACAVIR SULFATE\DOLUTEGRAVIR SODIUM\LAMIVUDINE
  3. OMEPRAZOLE. [Concomitant]
     Active Substance: OMEPRAZOLE
  4. ABACAVIR, LAMIVUDINE AND ZIDOVUDINE [Concomitant]
     Active Substance: ABACAVIR SULFATE\LAMIVUDINE\ZIDOVUDINE
  5. BIKTARVY [Concomitant]
     Active Substance: BICTEGRAVIR SODIUM\EMTRICITABINE\TENOFOVIR ALAFENAMIDE FUMARATE
     Indication: HIV INFECTION
  6. KETOCONAZOLE. [Concomitant]
     Active Substance: KETOCONAZOLE
  7. REYATAZ [Concomitant]
     Active Substance: ATAZANAVIR SULFATE
  8. PREDNISONE. [Concomitant]
     Active Substance: PREDNISONE
  9. PERMETHRIN. [Concomitant]
     Active Substance: PERMETHRIN
  10. CEPHALEXIN [CEFALEXIN] [Concomitant]
     Active Substance: CEPHALEXIN
  11. LOTEMAX [Concomitant]
     Active Substance: LOTEPREDNOL ETABONATE
  12. DOVONEX [Concomitant]
     Active Substance: CALCIPOTRIENE
  13. FLUTICASONE PROPIONATE. [Concomitant]
     Active Substance: FLUTICASONE PROPIONATE
  14. ONDANSETRON [Concomitant]
     Active Substance: ONDANSETRON
  15. CLOBETASOL 0.05% [Concomitant]
     Active Substance: CLOBETASOL
  16. VIREAD [Suspect]
     Active Substance: TENOFOVIR DISOPROXIL FUMARATE
     Indication: HIV INFECTION
     Dosage: UNK
     Route: 048
     Dates: start: 200203, end: 200903
  17. IBUPROFEN. [Concomitant]
     Active Substance: IBUPROFEN
  18. BACLOFEN. [Concomitant]
     Active Substance: BACLOFEN
  19. TERBINAFINE HCL [Concomitant]
     Active Substance: TERBINAFINE HYDROCHLORIDE
  20. PROLENSA [Concomitant]
     Active Substance: BROMFENAC SODIUM
  21. ALLOPURINOL. [Concomitant]
     Active Substance: ALLOPURINOL
  22. TAMSULOSIN HCL [Concomitant]
     Active Substance: TAMSULOSIN HYDROCHLORIDE
  23. ACETAMINOPHEN AND CODEINE [Concomitant]
     Active Substance: ACETAMINOPHEN\CODEINE PHOSPHATE
  24. AMOXICILLIN. [Concomitant]
     Active Substance: AMOXICILLIN
  25. OXYCODONE AND ACETAMINOPHEN [Concomitant]
     Active Substance: ACETAMINOPHEN\OXYCODONE HYDROCHLORIDE
  26. TRAMADOL HCL [Concomitant]
     Active Substance: TRAMADOL HYDROCHLORIDE
  27. DOXAZOSIN MESYLATE. [Concomitant]
     Active Substance: DOXAZOSIN MESYLATE
  28. TRUVADA [Suspect]
     Active Substance: EMTRICITABINE\TENOFOVIR DISOPROXIL FUMARATE
     Indication: HIV INFECTION
     Dosage: 200-300 MG
     Route: 048
     Dates: start: 201109, end: 201405
  29. STRIBILD [Suspect]
     Active Substance: COBICISTAT\ELVITEGRAVIR\EMTRICITABINE\TENOFOVIR DISOPROXIL FUMARATE
     Indication: HIV INFECTION
     Dosage: UNK
     Route: 048
     Dates: start: 201406, end: 201501
  30. HYDROCODONE BITARTRATE AND ACETAMINOPHEN [Concomitant]
     Active Substance: ACETAMINOPHEN\HYDROCODONE BITARTRATE
  31. LISINOPRIL. [Concomitant]
     Active Substance: LISINOPRIL
  32. HYDROCORTISONE. [Concomitant]
     Active Substance: HYDROCORTISONE
  33. INDOMETHACIN [INDOMETACIN] [Concomitant]
     Active Substance: INDOMETHACIN
  34. LEVOFLOXACIN. [Concomitant]
     Active Substance: LEVOFLOXACIN
  35. TRIAMCINOLONE [Concomitant]
     Active Substance: TRIAMCINOLONE
  36. NORVIR [Concomitant]
     Active Substance: RITONAVIR
  37. ATORVASTATIN [Concomitant]
     Active Substance: ATORVASTATIN
  38. HYDROXYZINE HCL [Concomitant]
     Active Substance: HYDROXYZINE HYDROCHLORIDE
  39. NEOMYCIN / POLY B / DEXAMETHASONE [Concomitant]
     Active Substance: DEXAMETHASONE\NEOMYCIN SULFATE\POLYMYXIN B SULFATE
  40. COLCHICINE. [Concomitant]
     Active Substance: COLCHICINE

REACTIONS (6)
  - Emotional distress [Unknown]
  - Anhedonia [Unknown]
  - Pain [Unknown]
  - Anxiety [Unknown]
  - Economic problem [Unknown]
  - Chronic kidney disease [Not Recovered/Not Resolved]

NARRATIVE: CASE EVENT DATE: 2018
